FAERS Safety Report 18820097 (Version 2)
Quarter: 2021Q1

REPORT INFORMATION
  Report Type: Report from Study
  Country: US (occurrence: US)
  Receive Date: 20210202
  Receipt Date: 20210205
  Transmission Date: 20210419
  Serious: No
  Sender: FDA-Public Use
  Company Number: NVSC2021US016752

PATIENT
  Age: 53 Year
  Sex: Male

DRUGS (1)
  1. ENTRESTO [Suspect]
     Active Substance: SACUBITRIL\VALSARTAN
     Indication: PRODUCT USED FOR UNKNOWN INDICATION
     Dosage: 200 MG, UNKNOWN (97/103MG)
     Route: 048

REACTIONS (4)
  - Product dose omission issue [Unknown]
  - Illness [Unknown]
  - Vomiting [Unknown]
  - Gastric disorder [Unknown]

NARRATIVE: CASE EVENT DATE: 202101
